FAERS Safety Report 21380257 (Version 1)
Quarter: 2022Q3

REPORT INFORMATION
  Report Type: Spontaneous
  Country: US (occurrence: US)
  Receive Date: 20220927
  Receipt Date: 20220927
  Transmission Date: 20221026
  Serious: Yes (Hospitalization, Other)
  Sender: FDA-Public Use
  Company Number: US-MYLANLABS-2022M1096845

PATIENT
  Age: 56 Year
  Sex: Female

DRUGS (6)
  1. SERTRALINE [Suspect]
     Active Substance: SERTRALINE HYDROCHLORIDE
     Indication: Major depression
     Dosage: 250 MILLIGRAM, QD
     Route: 048
  2. TOPIRAMATE [Suspect]
     Active Substance: TOPIRAMATE
     Indication: Generalised tonic-clonic seizure
     Dosage: 75 MILLIGRAM, QD
     Route: 048
  3. TOPIRAMATE [Suspect]
     Active Substance: TOPIRAMATE
     Dosage: UNK (DOSE TAPERED AND DISCONTINUED)
     Route: 048
  4. DISULFIRAM [Concomitant]
     Active Substance: DISULFIRAM
     Indication: Alcohol use disorder
     Dosage: 250 MILLIGRAM, PRN, AS NEEDED
     Route: 048
  5. NALTREXONE [Concomitant]
     Active Substance: NALTREXONE
     Indication: Alcohol use disorder
     Dosage: 380 MILLIGRAM, MONTHLY
     Route: 030
  6. NALTREXONE [Concomitant]
     Active Substance: NALTREXONE
     Indication: Drug use disorder

REACTIONS (4)
  - Drug ineffective [Unknown]
  - Vitamin B1 decreased [Recovering/Resolving]
  - Wernicke^s encephalopathy [Recovering/Resolving]
  - Weight decreased [Recovered/Resolved]
